FAERS Safety Report 19853759 (Version 1)
Quarter: 2021Q3

REPORT INFORMATION
  Report Type: Spontaneous
  Country: FR (occurrence: FR)
  Receive Date: 20210920
  Receipt Date: 20210920
  Transmission Date: 20211014
  Serious: Yes (Hospitalization)
  Sender: FDA-Public Use
  Company Number: FR-ASTRAZENECA-2021A727237

PATIENT
  Age: 19 Year
  Sex: Female
  Weight: 51 kg

DRUGS (9)
  1. RISPERIDONE. [Suspect]
     Active Substance: RISPERIDONE
     Indication: BEHAVIOUR DISORDER
     Route: 048
     Dates: start: 20210817
  2. DIAZEPAM. [Concomitant]
     Active Substance: DIAZEPAM
     Indication: BEHAVIOUR DISORDER
     Route: 048
     Dates: start: 20210716, end: 20210722
  3. QUETIAPINE. [Suspect]
     Active Substance: QUETIAPINE
     Indication: BEHAVIOUR DISORDER
     Route: 048
     Dates: start: 20210716, end: 20210723
  4. LOXAPAC [Suspect]
     Active Substance: LOXAPINE
     Indication: BEHAVIOUR DISORDER
     Dosage: 100.0MG UNKNOWN
     Route: 048
     Dates: start: 20210718, end: 20210726
  5. QUETIAPINE. [Suspect]
     Active Substance: QUETIAPINE
     Indication: BEHAVIOUR DISORDER
     Route: 048
     Dates: end: 20210707
  6. RISPERIDONE. [Suspect]
     Active Substance: RISPERIDONE
     Indication: BEHAVIOUR DISORDER
     Route: 048
     Dates: end: 20210707
  7. TERCIAN [Suspect]
     Active Substance: CYAMEMAZINE
     Indication: BEHAVIOUR DISORDER
     Route: 048
     Dates: start: 20210722, end: 20210726
  8. RISPERIDONE. [Suspect]
     Active Substance: RISPERIDONE
     Indication: BEHAVIOUR DISORDER
     Route: 048
     Dates: start: 20210716, end: 20210726
  9. QUETIAPINE. [Suspect]
     Active Substance: QUETIAPINE
     Indication: BEHAVIOUR DISORDER
     Route: 048
     Dates: start: 20210817

REACTIONS (1)
  - Neuroleptic malignant syndrome [Recovering/Resolving]

NARRATIVE: CASE EVENT DATE: 20210723
